FAERS Safety Report 25305574 (Version 1)
Quarter: 2025Q2

REPORT INFORMATION
  Report Type: Spontaneous
  Country: IT (occurrence: IT)
  Receive Date: 20250513
  Receipt Date: 20250513
  Transmission Date: 20250717
  Serious: Yes (Other)
  Sender: LAVIPHARM
  Company Number: IT-Lavipharm SA-2176639

PATIENT
  Age: 82 Year
  Sex: Male

DRUGS (11)
  1. CLONIDINE [Suspect]
     Active Substance: CLONIDINE
  2. CANRENONE [Suspect]
     Active Substance: CANRENONE
  3. LANTUS [Suspect]
     Active Substance: INSULIN GLARGINE
  4. HUMALOG [Concomitant]
     Active Substance: INSULIN LISPRO
  5. LASIX [Concomitant]
     Active Substance: FUROSEMIDE
  6. POTASSIUM CHLORIDE [Concomitant]
     Active Substance: POTASSIUM CHLORIDE
  7. ATORVASTATIN [Concomitant]
     Active Substance: ATORVASTATIN
  8. TICAGRELOR [Concomitant]
     Active Substance: TICAGRELOR
  9. ASPIRIN [Concomitant]
     Active Substance: ASPIRIN
  10. NORVASC [Concomitant]
     Active Substance: AMLODIPINE BESYLATE
  11. RAMIPRIL [Suspect]
     Active Substance: RAMIPRIL

REACTIONS (2)
  - Hypotension [Recovering/Resolving]
  - Hyperkalaemia [Recovering/Resolving]

NARRATIVE: CASE EVENT DATE: 20250418
